FAERS Safety Report 5110748-1 (Version None)
Quarter: 2006Q3

REPORT INFORMATION
  Report Type: 
  Country: None (occurrence: None)
  Receive Date: 20060919
  Receipt Date: 20060822
  Transmission Date: 20061208
  Serious: Yes (Other)
  Sender: FDA-Public Use
  Company Number: 2006SP001376

PATIENT
  Age: 38 Year
  Sex: Male
  Weight: 88.4514 kg

DRUGS (2)
  1. PEG-INTRON [Suspect]
     Indication: HEPATITIS C
     Dates: start: 20060622
  2. REBETOL [Suspect]
     Indication: HEPATITIS C
     Dosage: PO
     Route: 048
     Dates: start: 20060622

REACTIONS (8)
  - CHEST PAIN [None]
  - COUGH [None]
  - DEHYDRATION [None]
  - DEPRESSED MOOD [None]
  - DIZZINESS [None]
  - SYNCOPE [None]
  - THINKING ABNORMAL [None]
  - WEIGHT DECREASED [None]
